FAERS Safety Report 8201749-5 (Version None)
Quarter: 2012Q1

REPORT INFORMATION
  Report Type: 
  Country: None (occurrence: None)
  Receive Date: 20120312
  Receipt Date: 20120307
  Transmission Date: 20120608
  Serious: Yes (Hospitalization)
  Sender: FDA-Public Use
  Company Number: IT-ROCHE-1046464

PATIENT
  Sex: Male

DRUGS (4)
  1. METHYLPREDNISOLONE [Concomitant]
     Route: 041
     Dates: start: 20111017, end: 20111017
  2. ACETAMINOPHEN [Concomitant]
     Route: 048
     Dates: start: 20111017, end: 20111017
  3. TRIMETON [Concomitant]
     Dosage: 10MG/1 ML
     Route: 042
     Dates: start: 20111017, end: 20111017
  4. MABTHERA [Suspect]
     Indication: CHRONIC LYMPHOCYTIC LEUKAEMIA
     Route: 041
     Dates: start: 20111017, end: 20111017

REACTIONS (1)
  - HAEMATURIA [None]
